FAERS Safety Report 8416397-1 (Version None)
Quarter: 2012Q2

REPORT INFORMATION
  Report Type: 
  Country: None (occurrence: None)
  Receive Date: 20120606
  Receipt Date: 20120529
  Transmission Date: 20120825
  Serious: Yes (Hospitalization)
  Sender: FDA-Public Use
  Company Number: JP-SANOFI-AVENTIS-2012SA039300

PATIENT
  Age: 69 Year
  Sex: Male

DRUGS (8)
  1. VOGLIBOSE [Suspect]
     Indication: TYPE 2 DIABETES MELLITUS
     Route: 048
     Dates: start: 20111229, end: 20120201
  2. LASIX [Suspect]
     Indication: HYPERTENSION
     Route: 048
     Dates: start: 20111222, end: 20120201
  3. DISOPYRAMIDE PHOSPHATE [Suspect]
     Indication: ATRIAL FIBRILLATION
     Route: 048
     Dates: start: 20111231, end: 20120201
  4. CARVEDILOL [Concomitant]
     Route: 048
  5. WARFARIN SODIUM [Concomitant]
     Route: 048
  6. SITAGLIPTIN PHOSPHATE [Concomitant]
     Route: 048
  7. MICARDIS [Suspect]
     Indication: HYPERTENSION
     Route: 048
     Dates: start: 20111223, end: 20120201
  8. LANSOPRAZOLE [Suspect]
     Route: 048
     Dates: start: 20111223, end: 20120201

REACTIONS (1)
  - FEBRILE NEUTROPENIA [None]
